FAERS Safety Report 12147669 (Version 1)
Quarter: 2016Q1

REPORT INFORMATION
  Report Type: Spontaneous
  Country: US (occurrence: US)
  Receive Date: 20160304
  Receipt Date: 20160304
  Transmission Date: 20160526
  Serious: No
  Sender: FDA-Public Use
  Company Number: US-BAYER-2016-040625

PATIENT
  Age: 91 Year
  Sex: Female
  Weight: 86.17 kg

DRUGS (1)
  1. CLARITIN [Suspect]
     Active Substance: LORATADINE
     Dosage: 1 DF, QD
     Dates: start: 20160229

REACTIONS (2)
  - Product use issue [None]
  - Drug effect incomplete [Unknown]

NARRATIVE: CASE EVENT DATE: 20160229
